FAERS Safety Report 22652461 (Version 4)
Quarter: 2024Q3

REPORT INFORMATION
  Report Type: Report from Study
  Country: US (occurrence: US)
  Receive Date: 20230629
  Receipt Date: 20240813
  Transmission Date: 20241017
  Serious: No
  Sender: NOVARTIS
  Company Number: US-002147023-NVSC2023US145251

PATIENT
  Sex: Female

DRUGS (2)
  1. AIMOVIG [Suspect]
     Active Substance: ERENUMAB-AOOE
     Indication: Migraine
     Dosage: UNK
     Route: 065
  2. KESIMPTA [Suspect]
     Active Substance: OFATUMUMAB
     Indication: Product used for unknown indication
     Dosage: UNK
     Route: 065

REACTIONS (13)
  - Cognitive disorder [Unknown]
  - Gait disturbance [Unknown]
  - Memory impairment [Unknown]
  - Feeling abnormal [Unknown]
  - Erythema [Unknown]
  - Temperature intolerance [Unknown]
  - Fatigue [Unknown]
  - Asthenia [Unknown]
  - Hyperglycaemia [Unknown]
  - Decreased appetite [Unknown]
  - Rash [Unknown]
  - Lethargy [Unknown]
  - Dysphagia [Unknown]
